FAERS Safety Report 6682312-4 (Version None)
Quarter: 2010Q2

REPORT INFORMATION
  Report Type: 
  Country: None (occurrence: None)
  Receive Date: 20100414
  Receipt Date: 20100414
  Transmission Date: 20101027
  Serious: No
  Sender: FDA-Public Use
  Company Number: None

PATIENT
  Age: 25 Year
  Sex: Male

DRUGS (1)
  1. DIVALPROEX EXTENDED-RELEASE [Suspect]
     Dosage: 500MG (1TABLET) BID PO
     Route: 048
     Dates: start: 20100330, end: 20100402

REACTIONS (4)
  - ABDOMINAL DISTENSION [None]
  - DISCOMFORT [None]
  - GASTROINTESTINAL DISORDER [None]
  - PRODUCT QUALITY ISSUE [None]
